FAERS Safety Report 5473724-5 (Version None)
Quarter: 2007Q3

REPORT INFORMATION
  Report Type: 
  Country: None (occurrence: None)
  Receive Date: 20070831
  Receipt Date: 20070628
  Transmission Date: 20080115
  Serious: No
  Sender: FDA-Public Use
  Company Number: 243048

PATIENT
  Age: 52 Year
  Sex: Male
  Weight: 93.4 kg

DRUGS (6)
  1. LUCENTIS [Suspect]
     Indication: MACULAR DEGENERATION
     Dosage: INTRAOCULAR
     Route: 031
     Dates: start: 20070607
  2. COZAAR [Concomitant]
  3. ZOCOR [Concomitant]
  4. ZOLOFT [Concomitant]
  5. LEVOTHYROXINE SODIUM [Concomitant]
  6. PREVACID [Concomitant]

REACTIONS (1)
  - DIZZINESS [None]
